FAERS Safety Report 6324000-X (Version None)
Quarter: 2009Q3

REPORT INFORMATION
  Report Type: 
  Country: None (occurrence: None)
  Receive Date: 20090824
  Receipt Date: 20090820
  Transmission Date: 20100115
  Serious: Yes (Hospitalization)
  Sender: FDA-Public Use
  Company Number: B0588201A

PATIENT
  Sex: Male

DRUGS (1)
  1. DEROXAT [Suspect]
     Route: 048
     Dates: start: 20090201, end: 20090601

REACTIONS (14)
  - CHEILITIS [None]
  - CONJUNCTIVAL HAEMORRHAGE [None]
  - CONJUNCTIVITIS INFECTIVE [None]
  - DERMATITIS BULLOUS [None]
  - DYSPHAGIA [None]
  - EATING DISORDER [None]
  - GENERAL PHYSICAL HEALTH DETERIORATION [None]
  - LIP HAEMORRHAGE [None]
  - MOUTH ULCERATION [None]
  - ONYCHOMYCOSIS [None]
  - SKIN NECROSIS [None]
  - STEVENS-JOHNSON SYNDROME [None]
  - STOMATITIS HAEMORRHAGIC [None]
  - TONGUE ULCERATION [None]
